FAERS Safety Report 21861567 (Version 1)
Quarter: 2023Q1

REPORT INFORMATION
  Report Type: Other
  Country: US (occurrence: None)
  Receive Date: 20230113
  Receipt Date: 20230113
  Transmission Date: 20230417
  Serious: Yes (Death)
  Sender: FDA-Public Use
  Company Number: US-ROCHE-3263405

PATIENT
  Age: 48 Year
  Sex: Female

DRUGS (3)
  1. OCREVUS [Suspect]
     Active Substance: OCRELIZUMAB
     Indication: Multiple sclerosis
     Dosage: ADMINISTER 300MG DOSE - THEN REPEAT IN 2 WEEKS, PREVIOUS DATE OF TREATMENT WAS 30/APR/2021, 26/FEB/2
     Route: 065
     Dates: start: 20200226
  2. OCREVUS [Suspect]
     Active Substance: OCRELIZUMAB
     Dosage: ADMINISTER 600 MG DOSE
     Route: 065
  3. REBIF [Concomitant]
     Active Substance: INTERFERON BETA-1A

REACTIONS (1)
  - Death [Fatal]
